FAERS Safety Report 6862458-8 (Version None)
Quarter: 2010Q3

REPORT INFORMATION
  Report Type: 
  Country: None (occurrence: None)
  Receive Date: 20100721
  Receipt Date: 20100712
  Transmission Date: 20110219
  Serious: Yes (Hospitalization)
  Sender: FDA-Public Use
  Company Number: SE-ASTRAZENECA-2010SE23514

PATIENT
  Age: 20757 Day
  Sex: Female
  Weight: 99 kg

DRUGS (12)
  1. OMEPRAZOLE [Suspect]
     Indication: PROPHYLAXIS AGAINST GASTROINTESTINAL ULCER
     Route: 048
     Dates: start: 20060101
  2. CELEBRA [Suspect]
     Indication: RHEUMATOID ARTHRITIS
     Route: 048
     Dates: start: 20070101
  3. INVESTIGATIONAL DRUG [Suspect]
     Indication: RHEUMATOID ARTHRITIS
     Route: 048
     Dates: start: 20091214, end: 20100401
  4. INVESTIGATIONAL DRUG [Suspect]
     Route: 048
     Dates: start: 20100415
  5. DOXYCYCLINE [Concomitant]
     Indication: RESPIRATORY TRACT INFECTION
     Dates: start: 20100322, end: 20100330
  6. LEVOTHYROXINE SODIUM [Concomitant]
     Dates: start: 20031010
  7. SYMBICORT [Concomitant]
     Dates: start: 20060101
  8. VISCOTEARS [Concomitant]
     Dates: start: 20061010
  9. METHOTREXATE [Concomitant]
     Dates: start: 20060823
  10. FOLACIN [Concomitant]
     Dates: start: 20060823
  11. ATACAND [Concomitant]
  12. FELODIPINE [Concomitant]

REACTIONS (6)
  - AMNESIA [None]
  - CONFUSIONAL STATE [None]
  - DIZZINESS [None]
  - HYPONATRAEMIA [None]
  - HYPOPHOSPHATAEMIA [None]
  - RESPIRATORY TRACT INFECTION [None]
